FAERS Safety Report 9239223 (Version 2)
Quarter: 2013Q3

REPORT INFORMATION
  Report Type: Spontaneous
  Country: BR (occurrence: BR)
  Receive Date: 20130418
  Receipt Date: 20130830
  Transmission Date: 20140515
  Serious: Yes (Hospitalization, Disabling, Other)
  Sender: FDA-Public Use
  Company Number: PHHY2013BR037505

PATIENT
  Sex: Male
  Weight: 78 kg

DRUGS (11)
  1. TEGRETOL [Suspect]
     Indication: EPILEPSY
     Dosage: 45 ML, UNK
     Route: 048
  2. TEGRETOL [Suspect]
     Dosage: 45 ML, UNK
     Route: 048
  3. OMEPRAZOLE [Concomitant]
     Indication: ABDOMINAL PAIN UPPER
     Dosage: 1 DF, DAILY
     Route: 048
  4. SORINE [Concomitant]
     Indication: RHINITIS ALLERGIC
     Dosage: 3 %, BID
     Route: 045
  5. FENERGAN [Concomitant]
     Indication: ANTIALLERGIC THERAPY
     Dosage: 1 DF, DAILY
     Route: 048
  6. NEULEPTIL [Concomitant]
     Dosage: 1 DF, DAILY
     Route: 048
  7. RIVOTRIL [Concomitant]
     Indication: AUTISM
     Dosage: 1 DF, BID
     Route: 048
  8. RIVOTRIL [Concomitant]
     Indication: PSYCHOMOTOR HYPERACTIVITY
  9. RIVOTRIL [Concomitant]
     Indication: EPILEPSY
  10. OLANZAPINE [Concomitant]
     Indication: AUTISM
     Dosage: 1 DF, BID
     Route: 048
  11. VALPAKINE [Concomitant]
     Indication: EPILEPSY
     Dosage: 4 DF, DAILY
     Route: 048

REACTIONS (4)
  - Convulsion [Recovered/Resolved]
  - Mental disability [Not Recovered/Not Resolved]
  - Hypothyroidism [Not Recovered/Not Resolved]
  - Hypertension [Not Recovered/Not Resolved]
